FAERS Safety Report 10164824 (Version 2)
Quarter: 2014Q2

REPORT INFORMATION
  Report Type: Spontaneous
  Country: US (occurrence: US)
  Receive Date: 20140510
  Receipt Date: 20140510
  Transmission Date: 20141212
  Serious: No
  Sender: FDA-Public Use
  Company Number: US-BRISTOL-MYERS SQUIBB COMPANY-20197208

PATIENT
  Age: 58 Year
  Sex: Female
  Weight: 117.91 kg

DRUGS (4)
  1. BYDUREON [Suspect]
     Indication: TYPE 2 DIABETES MELLITUS
     Dates: start: 20131126, end: 20140211
  2. METFORMIN [Concomitant]
     Route: 048
  3. LANTUS [Concomitant]
     Dosage: /SQ:  50 UNITS QHS
     Route: 058
  4. CELEXA [Concomitant]

REACTIONS (4)
  - Injection site mass [Not Recovered/Not Resolved]
  - Injection site pruritus [Not Recovered/Not Resolved]
  - Constipation [Recovered/Resolved]
  - Palpitations [Recovered/Resolved]
